FAERS Safety Report 4381424-8 (Version None)
Quarter: 2004Q2

REPORT INFORMATION
  Report Type: 
  Country: None (occurrence: None)
  Receive Date: 20040617
  Receipt Date: 20040617
  Transmission Date: 20050107
  Serious: Yes (Hospitalization)
  Sender: FDA-Public Use
  Company Number: None

PATIENT
  Age: 12 Year
  Sex: Female
  Weight: 74.8435 kg

DRUGS (2)
  1. ABILIFY [Suspect]
     Indication: ASPERGER'S DISORDER
     Dosage: 15MG DAILY ORAL
     Route: 048
     Dates: start: 20021210, end: 20040616
  2. LEXAPRO [Suspect]
     Indication: ANXIETY
     Dosage: 30 MG DAILY ORAL
     Route: 048
     Dates: start: 20030514, end: 20040616

REACTIONS (11)
  - ABNORMAL BEHAVIOUR [None]
  - ACNE [None]
  - AFFECTIVE DISORDER [None]
  - BLOOD GLUCOSE ABNORMAL [None]
  - CONDITION AGGRAVATED [None]
  - DEPRESSION [None]
  - HAIR GROWTH ABNORMAL [None]
  - POLYCYSTIC OVARIES [None]
  - SUICIDAL IDEATION [None]
  - THINKING ABNORMAL [None]
  - WEIGHT INCREASED [None]
